FAERS Safety Report 6271873-5 (Version None)
Quarter: 2009Q3

REPORT INFORMATION
  Report Type: 
  Country: None (occurrence: None)
  Receive Date: 20090717
  Receipt Date: 20090715
  Transmission Date: 20100115
  Serious: Yes (Death, Hospitalization)
  Sender: FDA-Public Use
  Company Number: PHHY2009MX24610

PATIENT
  Age: 68 Year
  Sex: Male

DRUGS (2)
  1. EXFORGE [Suspect]
     Indication: HYPERTENSION
     Dosage: 1 TABLET (160/5 MG) PER DAY
     Route: 048
     Dates: start: 20090317, end: 20090501
  2. EXFORGE [Suspect]
     Dosage: 1 TABLET (160/5 MG) PER DAY
     Route: 048
     Dates: start: 20090527

REACTIONS (5)
  - CARDIO-RESPIRATORY ARREST [None]
  - HYPERTENSION [None]
  - INFARCTION [None]
  - RENAL FAILURE [None]
  - TREATMENT NONCOMPLIANCE [None]
